FAERS Safety Report 23720766 (Version 1)
Quarter: 2024Q2

REPORT INFORMATION
  Report Type: Spontaneous
  Country: US (occurrence: US)
  Receive Date: 20240409
  Receipt Date: 20240409
  Transmission Date: 20240716
  Serious: Yes (Hospitalization)
  Sender: FDA-Public Use
  Company Number: US-GLAXOSMITHKLINE-US2024GSK044213

PATIENT

DRUGS (2)
  1. LAMOTRIGINE [Suspect]
     Active Substance: LAMOTRIGINE
     Indication: Bipolar disorder
     Dosage: 25 MG
  2. LAMOTRIGINE [Suspect]
     Active Substance: LAMOTRIGINE
     Dosage: 50 MG

REACTIONS (11)
  - Pharyngitis mycoplasmal [Unknown]
  - Mucosal inflammation [Recovered/Resolved]
  - Tongue pruritus [Recovered/Resolved]
  - Swollen tongue [Recovered/Resolved]
  - Blister [Recovered/Resolved]
  - Lip scab [Recovered/Resolved]
  - Oropharyngeal plaque [Recovered/Resolved]
  - Rash papular [Recovered/Resolved]
  - Skin erosion [Unknown]
  - Upper respiratory tract infection [Unknown]
  - Mucocutaneous candidiasis [Recovered/Resolved]
